FAERS Safety Report 8249707-9 (Version None)
Quarter: 2012Q2

REPORT INFORMATION
  Report Type: 
  Country: None (occurrence: None)
  Receive Date: 20120402
  Receipt Date: 20120326
  Transmission Date: 20120825
  Serious: Yes (Death, Other)
  Sender: FDA-Public Use
  Company Number: US-CELGENEUS-163-21880-12033018

PATIENT

DRUGS (54)
  1. THALOMID [Suspect]
     Dosage: 50 MILLIGRAM
     Route: 048
  2. THALOMID [Suspect]
     Dosage: 50 MILLIGRAM
     Route: 048
  3. DEXAMETHASONE [Suspect]
     Dosage: 12 MILLIGRAM
     Route: 065
  4. MELPHALAN HYDROCHLORIDE [Suspect]
     Dosage: 5 MILLIGRAM/SQ. METER
     Route: 065
  5. CYCLOPHOSPHAMIDE [Suspect]
     Dosage: 75 MICROGRAM/SQ. METER
     Route: 065
  6. THALOMID [Suspect]
     Dosage: 100 MILLIGRAM
     Route: 048
  7. MELPHALAN HYDROCHLORIDE [Suspect]
     Indication: MULTIPLE MYELOMA
     Dosage: 10 MILLIGRAM/SQ. METER
     Route: 065
  8. MELPHALAN HYDROCHLORIDE [Suspect]
     Dosage: 20 MILLIGRAM/SQ. METER
     Route: 065
  9. DOXORUBICIN HCL [Suspect]
     Dosage: 10 MICROGRAM/SQ. METER
     Route: 065
  10. CYCLOPHOSPHAMIDE [Suspect]
     Dosage: 75 MICROGRAM/SQ. METER
     Route: 065
  11. BORTEZOMIB [Suspect]
     Indication: MULTIPLE MYELOMA
     Dosage: 1 MILLIGRAM/SQ. METER
     Route: 065
  12. BORTEZOMIB [Suspect]
     Dosage: 1 MILLIGRAM/SQ. METER
     Route: 065
  13. BORTEZOMIB [Suspect]
     Dosage: 1.3 MILLIGRAM/SQ. METER
     Route: 065
  14. BORTEZOMIB [Suspect]
     Dosage: 1.3 MILLIGRAM/SQ. METER
     Route: 065
  15. DEXAMETHASONE [Suspect]
     Dosage: 20 MILLIGRAM
     Route: 065
  16. DEXAMETHASONE [Suspect]
     Dosage: 40 MILLIGRAM
     Route: 065
  17. MELPHALAN HYDROCHLORIDE [Suspect]
     Dosage: 4 MILLIGRAM/SQ. METER
     Route: 065
  18. CISPLATIN [Suspect]
     Dosage: 75 MICROGRAM/SQ. METER
     Route: 065
  19. DOXORUBICIN HCL [Suspect]
     Indication: MULTIPLE MYELOMA
     Dosage: 10 MICROGRAM/SQ. METER
     Route: 065
  20. DOXORUBICIN HCL [Suspect]
     Dosage: 75 MICROGRAM/SQ. METER
     Route: 065
  21. REVLIMID [Suspect]
     Dosage: 25 MILLIGRAM
     Route: 048
  22. THALOMID [Suspect]
     Dosage: 100 MILLIGRAM
     Route: 048
  23. DEXAMETHASONE [Suspect]
     Dosage: 20 MILLIGRAM
     Route: 065
  24. MELPHALAN HYDROCHLORIDE [Suspect]
     Dosage: 5 MILLIGRAM/SQ. METER
     Route: 065
  25. CISPLATIN [Suspect]
     Indication: MULTIPLE MYELOMA
     Dosage: 10 MICROGRAM/SQ. METER
     Route: 065
  26. CYCLOPHOSPHAMIDE [Suspect]
     Dosage: 100 MICROGRAM/SQ. METER
     Route: 065
  27. ETOPOSIDE [Suspect]
     Dosage: 60 MICROGRAM/SQ. METER
     Route: 065
  28. REVLIMID [Suspect]
     Dosage: 15 MILLIGRAM
     Route: 048
  29. BORTEZOMIB [Suspect]
     Dosage: 1 MILLIGRAM/SQ. METER
     Route: 065
  30. DEXAMETHASONE [Suspect]
     Dosage: 20 MILLIGRAM
     Route: 065
  31. CISPLATIN [Suspect]
     Dosage: 75 MICROGRAM/SQ. METER
     Route: 065
  32. CYCLOPHOSPHAMIDE [Suspect]
     Dosage: 100 MICROGRAM/SQ. METER
     Route: 065
  33. ETOPOSIDE [Suspect]
     Dosage: 80 MICROGRAM/SQ. METER
     Route: 065
  34. REVLIMID [Suspect]
     Indication: MULTIPLE MYELOMA
     Dosage: 25 MILLIGRAM
     Route: 048
  35. THALOMID [Suspect]
     Dosage: 50 MILLIGRAM
     Route: 048
  36. DEXAMETHASONE [Suspect]
     Indication: MULTIPLE MYELOMA
     Dosage: 40 MILLIGRAM
     Route: 065
  37. DEXAMETHASONE [Suspect]
     Dosage: 40 MILLIGRAM
     Route: 065
  38. DEXAMETHASONE [Suspect]
     Dosage: 20 MILLIGRAM
     Route: 065
  39. CISPLATIN [Suspect]
     Dosage: 10 MICROGRAM/SQ. METER
     Route: 065
  40. CISPLATIN [Suspect]
     Dosage: 10 MICROGRAM/SQ. METER
     Route: 065
  41. DOXORUBICIN HCL [Suspect]
     Dosage: 75 MICROGRAM/SQ. METER
     Route: 065
  42. CYCLOPHOSPHAMIDE [Suspect]
     Indication: MULTIPLE MYELOMA
     Dosage: 400 MICROGRAM/SQ. METER
     Route: 065
  43. ETOPOSIDE [Suspect]
     Indication: MULTIPLE MYELOMA
     Dosage: 40 MICROGRAM/SQ. METER
     Route: 065
  44. THALOMID [Suspect]
     Indication: MULTIPLE MYELOMA
     Dosage: 200 MILLIGRAM
     Route: 048
  45. THALOMID [Suspect]
     Dosage: 50 MILLIGRAM
     Route: 048
  46. DEXAMETHASONE [Suspect]
     Dosage: 20 MILLIGRAM
     Route: 065
  47. MELPHALAN HYDROCHLORIDE [Suspect]
     Dosage: 20 MILLIGRAM/SQ. METER
     Route: 065
  48. ETOPOSIDE [Suspect]
     Dosage: 80 MICROGRAM/SQ. METER
     Route: 065
  49. THALOMID [Suspect]
     Dosage: 50 MILLIGRAM
     Route: 048
  50. BORTEZOMIB [Suspect]
     Dosage: 1.3 MILLIGRAM/SQ. METER
     Route: 065
  51. DEXAMETHASONE [Suspect]
     Dosage: 20 MILLIGRAM
     Route: 065
  52. DEXAMETHASONE [Suspect]
     Dosage: 20 MILLIGRAM
     Route: 065
  53. DOXORUBICIN HCL [Suspect]
     Dosage: 10 MICROGRAM/SQ. METER
     Route: 065
  54. ETOPOSIDE [Suspect]
     Dosage: 60 MICROGRAM/SQ. METER
     Route: 065

REACTIONS (8)
  - DEATH [None]
  - INFECTION [None]
  - GASTROINTESTINAL TOXICITY [None]
  - DISEASE PROGRESSION [None]
  - HEPATOBILIARY DISEASE [None]
  - METABOLIC DISORDER [None]
  - HAEMATOTOXICITY [None]
  - ELECTROLYTE IMBALANCE [None]
